FAERS Safety Report 6381900-2 (Version None)
Quarter: 2009Q3

REPORT INFORMATION
  Report Type: 
  Country: None (occurrence: None)
  Receive Date: 20090930
  Receipt Date: 20090923
  Transmission Date: 20100115
  Serious: Yes (Hospitalization, Other)
  Sender: FDA-Public Use
  Company Number: US-JNJFOC-20090907365

PATIENT
  Sex: Female
  Weight: 54.43 kg

DRUGS (8)
  1. DURAGESIC-100 [Suspect]
     Indication: NEURALGIA
     Dosage: DOSE: 100 UG/HR + 25 UG/HR PATCH
     Route: 062
  2. DILAUDID [Concomitant]
     Indication: PAIN
     Route: 048
  3. METOPROLOL SUCCINATE [Concomitant]
     Indication: CARDIAC DISORDER
     Route: 048
  4. LEVOTHYROXINE SODIUM [Concomitant]
     Indication: THYROID DISORDER
     Route: 048
  5. PROMETHAZINE [Concomitant]
     Indication: NAUSEA
     Route: 048
  6. NEURONTIN [Concomitant]
     Indication: CONVULSION
     Route: 048
  7. ALBUTEROL SULFATE/IPRATROPIUM [Concomitant]
     Indication: ASTHMA
     Route: 055
  8. ASPIRIN [Concomitant]
     Indication: THROMBOSIS
     Route: 048

REACTIONS (10)
  - ANXIETY [None]
  - CONSTIPATION [None]
  - FLUID RETENTION [None]
  - GASTROOESOPHAGEAL REFLUX DISEASE [None]
  - HYPERHIDROSIS [None]
  - HYPERSENSITIVITY [None]
  - PRODUCT QUALITY ISSUE [None]
  - UTERINE CANCER [None]
  - WEIGHT INCREASED [None]
  - WRONG TECHNIQUE IN DRUG USAGE PROCESS [None]
